FAERS Safety Report 20893324 (Version 1)
Quarter: 2022Q2

REPORT INFORMATION
  Report Type: Spontaneous
  Country: IT (occurrence: IT)
  Receive Date: 20220531
  Receipt Date: 20220531
  Transmission Date: 20220721
  Serious: Yes (Death, Other)
  Sender: FDA-Public Use
  Company Number: IT-AMGEN-ITASP2022090550

PATIENT

DRUGS (4)
  1. APREMILAST [Suspect]
     Active Substance: APREMILAST
     Indication: Psoriasis
     Dosage: UNK
     Route: 065
  2. ADALIMUMAB [Suspect]
     Active Substance: ADALIMUMAB
     Indication: Psoriasis
     Dosage: UNK
     Route: 065
  3. ETANERCEPT [Suspect]
     Active Substance: ETANERCEPT
     Indication: Psoriasis
     Route: 065
  4. RISANKIZUMAB [Suspect]
     Active Substance: RISANKIZUMAB
     Indication: Psoriasis
     Dosage: UNK
     Route: 065
     Dates: start: 202009

REACTIONS (7)
  - Death [Fatal]
  - Treatment failure [Unknown]
  - Upper respiratory tract infection [Unknown]
  - Headache [Unknown]
  - Oedema [Unknown]
  - Arthralgia [Unknown]
  - Diarrhoea [Unknown]
